FAERS Safety Report 8012298-1 (Version None)
Quarter: 2011Q4

REPORT INFORMATION
  Report Type: 
  Country: None (occurrence: None)
  Receive Date: 20111228
  Receipt Date: 20111223
  Transmission Date: 20120403
  Serious: Yes (Death)
  Sender: FDA-Public Use
  Company Number: US-PFIZER INC-2011307525

PATIENT
  Age: 4 Year
  Sex: Male

DRUGS (7)
  1. ISOPROPANOL [Suspect]
     Route: 065
  2. DIPHENHYDRAMINE HCL [Suspect]
     Route: 065
  3. DEXTROMETHORPHAN HYDROBROMIDE [Suspect]
     Route: 065
  4. ACETONE [Suspect]
     Route: 065
  5. ETHANOL [Suspect]
     Route: 065
  6. ALPRAZOLAM [Suspect]
     Route: 065
  7. CHLORPHENIRAMINE MALEATE [Suspect]
     Route: 065

REACTIONS (3)
  - INJURY [None]
  - RESPIRATORY ARREST [None]
  - CARDIAC ARREST [None]
